FAERS Safety Report 5392356-0 (Version None)
Quarter: 2007Q3

REPORT INFORMATION
  Report Type: 
  Country: None (occurrence: None)
  Receive Date: 20070720
  Receipt Date: 20070717
  Transmission Date: 20080115
  Serious: Yes (Other)
  Sender: FDA-Public Use
  Company Number: A0587043A

PATIENT
  Age: 67 Year
  Sex: Male

DRUGS (12)
  1. AVANDIA [Suspect]
     Dosage: 4MG PER DAY
     Route: 048
     Dates: start: 20050601
  2. METFORMIN HCL [Suspect]
     Dosage: 500MG TWICE PER DAY
     Dates: start: 20050601
  3. AVANDAMET [Suspect]
     Route: 048
     Dates: start: 20060101
  4. ALTACE [Concomitant]
  5. ATENOLOL [Concomitant]
  6. LIPITOR [Concomitant]
  7. GLUCOTROL [Concomitant]
  8. NEXIUM [Concomitant]
  9. TRIAMTERENE [Concomitant]
  10. LEVOXYL [Concomitant]
  11. DICLOFENAC [Concomitant]
  12. ASPIRIN [Concomitant]

REACTIONS (4)
  - CEREBROVASCULAR ACCIDENT [None]
  - DIARRHOEA [None]
  - MYOCARDIAL INFARCTION [None]
  - NAUSEA [None]
